FAERS Safety Report 5713146-2 (Version None)
Quarter: 2008Q2

REPORT INFORMATION
  Report Type: 
  Country: None (occurrence: None)
  Receive Date: 20080422
  Receipt Date: 20080410
  Transmission Date: 20081010
  Serious: Yes (Hospitalization)
  Sender: FDA-Public Use
  Company Number: FR-WYE-H03665508

PATIENT
  Sex: Male

DRUGS (6)
  1. PANTOPRAZOLE SODIUM [Suspect]
     Dosage: 40 MG, FREQUENCY UNKNOWN
     Route: 048
  2. CORVASAL [Suspect]
     Route: 048
     Dates: start: 20070622
  3. DEROXAT [Suspect]
     Route: 048
     Dates: start: 20070622
  4. CARDENSIEL [Suspect]
     Dosage: 5 MG, FREQUENCY UNKNOWN
     Route: 048
     Dates: start: 20070622
  5. LASILIX [Suspect]
     Route: 048
     Dates: start: 20060101, end: 20070705
  6. LANSOPRAZOLE [Suspect]
     Dosage: 15 MG, FREQUENCY UNKNOWN
     Route: 048
     Dates: start: 20070622, end: 20070705

REACTIONS (3)
  - DIARRHOEA [None]
  - HYPONATRAEMIA [None]
  - RENAL FAILURE [None]
